FAERS Safety Report 25151975 (Version 1)
Quarter: 2025Q2

REPORT INFORMATION
  Report Type: Report from Study
  Country: US (occurrence: US)
  Receive Date: 20250402
  Receipt Date: 20250402
  Transmission Date: 20250717
  Serious: Yes (Death, Other)
  Sender: TAKEDA
  Company Number: US-TAKEDA-2023TUS088366

PATIENT
  Age: 93 Year
  Sex: Female

DRUGS (16)
  1. PONATINIB [Suspect]
     Active Substance: PONATINIB
     Indication: Chronic myeloid leukaemia
     Dosage: 30 MILLIGRAM, QD
  2. PONATINIB [Suspect]
     Active Substance: PONATINIB
     Dosage: 30 MILLIGRAM, QD
  3. PANTOPRAZOLE SODIUM [Concomitant]
     Active Substance: PANTOPRAZOLE SODIUM
  4. VITAMIN D [Concomitant]
     Active Substance: VITAMIN D NOS
  5. BIOTIN [Concomitant]
     Active Substance: BIOTIN
  6. METOPROLOL TARTRATE [Concomitant]
     Active Substance: METOPROLOL TARTRATE
  7. PROCHLORPERAZINE MALEATE [Concomitant]
     Active Substance: PROCHLORPERAZINE MALEATE
  8. QUETIAPINE FUMARATE [Concomitant]
     Active Substance: QUETIAPINE FUMARATE
  9. MIRALAX [Concomitant]
     Active Substance: POLYETHYLENE GLYCOL 3350
  10. LEVETIRACETAM [Concomitant]
     Active Substance: LEVETIRACETAM
  11. METHYLPHENIDATE HYDROCHLORIDE [Concomitant]
     Active Substance: METHYLPHENIDATE HYDROCHLORIDE
  12. ACETAMINOPHEN [Concomitant]
     Active Substance: ACETAMINOPHEN
  13. CELEBREX [Concomitant]
     Active Substance: CELECOXIB
  14. DONEPEZIL HYDROCHLORIDE [Concomitant]
     Active Substance: DONEPEZIL HYDROCHLORIDE
  15. HYDROXYUREA [Concomitant]
     Active Substance: HYDROXYUREA
  16. LORATADINE [Concomitant]
     Active Substance: LORATADINE

REACTIONS (6)
  - Death [Fatal]
  - Blood test abnormal [Unknown]
  - Abdominal discomfort [Unknown]
  - Pain in extremity [Unknown]
  - Abdominal pain [Unknown]
  - Arthralgia [Unknown]

NARRATIVE: CASE EVENT DATE: 20231227
